FAERS Safety Report 23262511 (Version 1)
Quarter: 2023Q4

REPORT INFORMATION
  Report Type: Spontaneous
  Country: US (occurrence: US)
  Receive Date: 20231205
  Receipt Date: 20231205
  Transmission Date: 20240109
  Serious: No
  Sender: FDA-Public Use
  Company Number: US-PFIZER INC-202300400365

PATIENT
  Age: 25 Year
  Sex: Male

DRUGS (4)
  1. XELJANZ [Suspect]
     Active Substance: TOFACITINIB CITRATE
     Dosage: 10 MG, 2X/DAY
     Dates: start: 202211
  2. MESALAMINE [Concomitant]
     Active Substance: MESALAMINE
  3. URSODIOL [Concomitant]
     Active Substance: URSODIOL
  4. BALSALAZIDE [Concomitant]
     Active Substance: BALSALAZIDE
     Dosage: UNK
     Dates: start: 202311

REACTIONS (3)
  - Illness [Unknown]
  - Diarrhoea [Unknown]
  - Therapeutic product effect incomplete [Not Recovered/Not Resolved]

NARRATIVE: CASE EVENT DATE: 20231101
